FAERS Safety Report 11612289 (Version 1)
Quarter: 2015Q4

REPORT INFORMATION
  Report Type: Spontaneous
  Country: BR (occurrence: BR)
  Receive Date: 20151008
  Receipt Date: 20151008
  Transmission Date: 20160304
  Serious: Yes (Life-Threatening, Hospitalization, Other)
  Sender: FDA-Public Use
  Company Number: BR-JNJFOC-20151004320

PATIENT
  Age: 90 Year
  Sex: Female
  Weight: 47 kg

DRUGS (11)
  1. ENALAPRIL [Concomitant]
     Active Substance: ENALAPRIL
     Route: 048
     Dates: start: 2005
  2. XARELTO [Suspect]
     Active Substance: RIVAROXABAN
     Indication: VENOUS THROMBOSIS LIMB
     Route: 048
     Dates: start: 20150805, end: 20150910
  3. XARELTO [Suspect]
     Active Substance: RIVAROXABAN
     Indication: EMBOLISM VENOUS
     Route: 048
     Dates: start: 20150805, end: 20150910
  4. ONDANSETRON [Concomitant]
     Active Substance: ONDANSETRON
     Indication: PROPHYLAXIS OF NAUSEA AND VOMITING
     Route: 048
     Dates: start: 2015
  5. ALDACTONE [Concomitant]
     Active Substance: SPIRONOLACTONE
     Indication: POLYURIA
     Route: 048
     Dates: start: 2005
  6. FUROSEMIDE SODIUM [Concomitant]
     Active Substance: FUROSEMIDE SODIUM
     Indication: POLYURIA
     Route: 048
     Dates: start: 2005
  7. SINVASTATINA MEPHA [Concomitant]
     Indication: BLOOD CHOLESTEROL INCREASED
     Route: 048
  8. PURAN [Concomitant]
     Active Substance: LEVOTHYROXINE SODIUM
     Indication: HYPOTHYROIDISM
     Route: 048
     Dates: start: 2005
  9. AAS [Concomitant]
     Active Substance: ASPIRIN
     Indication: THROMBOSIS
     Route: 048
     Dates: end: 201508
  10. OMEPRAZOL [Concomitant]
     Active Substance: OMEPRAZOLE
     Indication: GASTRIC DISORDER
     Route: 048
     Dates: start: 2005
  11. CARVEDILOL. [Concomitant]
     Active Substance: CARVEDILOL
     Indication: ARRHYTHMIA
     Route: 048
     Dates: start: 2005

REACTIONS (12)
  - Pallor [Recovered/Resolved]
  - Foaming at mouth [Recovered/Resolved]
  - Heart rate decreased [Recovered/Resolved]
  - Cough [Recovered/Resolved]
  - Pneumonia [Recovered/Resolved]
  - Anal haemorrhage [Recovered/Resolved]
  - Vomiting [Recovered/Resolved]
  - Anaemia [Not Recovered/Not Resolved]
  - Hypotension [Not Recovered/Not Resolved]
  - Decreased appetite [Recovered/Resolved]
  - Syncope [Recovered/Resolved]
  - Nausea [Recovered/Resolved]

NARRATIVE: CASE EVENT DATE: 2015
